FAERS Safety Report 7147348 (Version 4)
Quarter: 2015Q1

REPORT INFORMATION
  Report Type: Spontaneous
  Country: US (occurrence: US)
  Receive Date: 20091013
  Receipt Date: 20150116
  Transmission Date: 20150721
  Serious: Yes (Hospitalization)
  Sender: FDA-Public Use
  Company Number: US-BAYER-200935663NA

PATIENT
  Age: 49 Year
  Sex: Female
  Weight: 72.56 kg

DRUGS (6)
  1. PHENERGAN [Concomitant]
     Active Substance: PROMETHAZINE HYDROCHLORIDE
     Indication: NAUSEA
     Dosage: PRN
  2. LEXAPRO [Concomitant]
     Active Substance: ESCITALOPRAM OXALATE
     Indication: DEPRESSION
     Dosage: 10 MG, UNK
  3. ZOFRAN [Concomitant]
     Active Substance: ONDANSETRON HYDROCHLORIDE
     Indication: VOMITING
     Dosage: 4MG
  4. YASMIN [Suspect]
     Active Substance: DROSPIRENONE\ETHINYL ESTRADIOL
     Indication: DYSMENORRHOEA
     Dosage: UNK MG, UNK
     Route: 048
     Dates: start: 2005
  5. K-DUR [Concomitant]
     Active Substance: POTASSIUM CHLORIDE
     Dosage: 20 MEQ, UNK
  6. CLARITIN [Concomitant]
     Active Substance: LORATADINE
     Indication: MULTIPLE ALLERGIES
     Dosage: 10 MG,DAILY

REACTIONS (11)
  - Vomiting [None]
  - Hypoaesthesia [None]
  - Cerebrovascular accident [None]
  - Injury [None]
  - Thrombosis [Unknown]
  - Gait disturbance [None]
  - Vision blurred [None]
  - Nausea [None]
  - Limb discomfort [None]
  - Pulmonary embolism [Unknown]
  - Balance disorder [None]

NARRATIVE: CASE EVENT DATE: 20051216
